FAERS Safety Report 9682627 (Version 2)
Quarter: 2013Q4

REPORT INFORMATION
  Report Type: Spontaneous
  Country: KR (occurrence: KR)
  Receive Date: 20131112
  Receipt Date: 20131112
  Transmission Date: 20140711
  Serious: Yes (Other)
  Sender: FDA-Public Use
  Company Number: KR-ACCORD-020257

PATIENT
  Age: 15 Year
  Sex: Female

DRUGS (5)
  1. FLUDARABINE [Concomitant]
     Dosage: TBI-BASED REGIMEN COMPRISED TBI (400-600 CGY), FLUDARABINE (150MG/M2
  2. TACROLIMUS [Suspect]
     Indication: PROPHYLAXIS AGAINST GRAFT VERSUS HOST DISEASE
     Dosage: FK 506
  3. MYCOPHENOLATE MOFETIL [Suspect]
     Indication: PROPHYLAXIS AGAINST GRAFT VERSUS HOST DISEASE
  4. RITUXIMAB [Concomitant]
  5. CYCLOSPORIN [Concomitant]
     Dosage: TBI-BASED REGIMEN COMPRISED TBI (400-600 CGY), CY (100-120MG/KG)

REACTIONS (3)
  - Cytomegalovirus infection [Recovered/Resolved]
  - BK virus infection [Unknown]
  - Cystitis haemorrhagic [Recovered/Resolved]
